FAERS Safety Report 10285107 (Version 1)
Quarter: 2020Q3

REPORT INFORMATION
  Report Type: Spontaneous
  Country: JP (occurrence: JP)
  Receive Date: 20140708
  Receipt Date: 20140708
  Transmission Date: 20201104
  Serious: Yes (Life-Threatening, Hospitalization, Other)
  Sender: FDA-Public Use
  Company Number: JP-PFIZER INC-2014183766

PATIENT
  Age: 79 Year
  Sex: Male
  Weight: 53 kg

DRUGS (11)
  1. REMIFENTANIL [Suspect]
     Active Substance: REMIFENTANIL
     Dosage: 0.2 MICROG/KG/MIN
  2. PROPOFOL. [Suspect]
     Active Substance: PROPOFOL
     Indication: ANAESTHESIA
     Dosage: 80 MG, UNK
  3. ROCURONIUM [Concomitant]
     Active Substance: ROCURONIUM BROMIDE
     Indication: HYPOTONIA
     Dosage: 40 MG, UNK
  4. SPIRONOLACTONE. [Suspect]
     Active Substance: SPIRONOLACTONE
     Dosage: 25 MG, DAILY
  5. REMIFENTANIL [Suspect]
     Active Substance: REMIFENTANIL
     Indication: ANAESTHESIA
     Dosage: 0.5 MICROG/KG/MIN
  6. FUROSEMIDE. [Concomitant]
     Active Substance: FUROSEMIDE
     Dosage: 10 MG, DAILY
  7. LOXOPROFEN SODIUM [Suspect]
     Active Substance: LOXOPROFEN SODIUM
     Dosage: 180 MG, DAILY
  8. AMIKACIN. [Suspect]
     Active Substance: AMIKACIN
     Dosage: 200 MG, DAILY
  9. SEVOFLURANE. [Suspect]
     Active Substance: SEVOFLURANE
     Indication: ANAESTHESIA
     Dosage: 1 TO 1.5%
  10. AMLODIPINE [Concomitant]
     Active Substance: AMLODIPINE BESYLATE
     Dosage: 2.5 MG, DAILY
  11. CARVEDILOL. [Suspect]
     Active Substance: CARVEDILOL
     Dosage: 2.5 MG, DAILY
     Route: 048

REACTIONS (3)
  - Hyperkalaemia [Recovering/Resolving]
  - Metabolic acidosis [Recovering/Resolving]
  - Cardiac arrest [Recovering/Resolving]
